FAERS Safety Report 11745459 (Version 1)
Quarter: 2015Q4

REPORT INFORMATION
  Report Type: Spontaneous
  Country: US (occurrence: None)
  Receive Date: 20151116
  Receipt Date: 20151116
  Transmission Date: 20160304
  Serious: Yes (Other)
  Sender: FDA-Public Use
  Company Number: None

PATIENT
  Age: 80 Year
  Sex: Male
  Weight: 90.72 kg

DRUGS (22)
  1. SPIRONOLACTONE. [Suspect]
     Active Substance: SPIRONOLACTONE
     Indication: CARDIAC DISORDER
     Route: 048
     Dates: start: 201501, end: 201505
  2. SPIRONOLACTONE. [Suspect]
     Active Substance: SPIRONOLACTONE
     Indication: CARDIAC FAILURE CONGESTIVE
     Route: 048
     Dates: start: 201501, end: 201505
  3. LOSARTAN. [Concomitant]
     Active Substance: LOSARTAN
  4. METFORMIN [Concomitant]
     Active Substance: METFORMIN HYDROCHLORIDE
  5. DIFIBULATOR IMPLANT [Concomitant]
  6. GLUCOSAMINE [Concomitant]
     Active Substance: GLUCOSAMINE
  7. SPIRONOLACTONE. [Suspect]
     Active Substance: SPIRONOLACTONE
     Indication: FLUID RETENTION
     Route: 048
     Dates: start: 201501, end: 201505
  8. ELIQUIS [Concomitant]
     Active Substance: APIXABAN
  9. CQ10 [Concomitant]
     Active Substance: UBIDECARENONE
  10. TURMERIC [Concomitant]
     Active Substance: TURMERIC
  11. FLAXSEED [Concomitant]
     Active Substance: FLAX SEED
  12. LIPITOR [Concomitant]
     Active Substance: ATORVASTATIN CALCIUM
  13. OCUVITE [Concomitant]
     Active Substance: VITAMINS
  14. SPIRONOLACTONE. [Suspect]
     Active Substance: SPIRONOLACTONE
     Indication: BLOOD PRESSURE MEASUREMENT
     Route: 048
     Dates: start: 201501, end: 201505
  15. DELZICOL [Concomitant]
     Active Substance: MESALAMINE
  16. ISOSORBIDE MONONITRATE. [Concomitant]
     Active Substance: ISOSORBIDE MONONITRATE
  17. COREG [Concomitant]
     Active Substance: CARVEDILOL
  18. PROSTATE PILL [Concomitant]
  19. HYDROCHLOROTHIAZIDE. [Concomitant]
     Active Substance: HYDROCHLOROTHIAZIDE
  20. VITAMINS [Concomitant]
     Active Substance: VITAMINS
  21. CARB/LEVO [Concomitant]
     Active Substance: CARBIDOPA\LEVODOPA
  22. FISH OIL [Concomitant]
     Active Substance: FISH OIL

REACTIONS (3)
  - Gynaecomastia [None]
  - Breast swelling [None]
  - Breast pain [None]

NARRATIVE: CASE EVENT DATE: 201502
